FAERS Safety Report 12341296 (Version 3)
Quarter: 2016Q2

REPORT INFORMATION
  Report Type: Spontaneous
  Country: CA (occurrence: CA)
  Receive Date: 20160506
  Receipt Date: 20160622
  Transmission Date: 20160815
  Serious: Yes (Other)
  Sender: FDA-Public Use
  Company Number: CA-ABBVIE-16P-028-1622410-00

PATIENT
  Age: 17 Year
  Sex: Male

DRUGS (1)
  1. DEPAKENE [Suspect]
     Active Substance: VALPROIC ACID
     Indication: PRODUCT USED FOR UNKNOWN INDICATION
     Dosage: 750MG IN THE MORNING AND 625MG NIGHT
     Route: 065

REACTIONS (2)
  - Hypocalcaemia [Unknown]
  - Hypoparathyroidism [Unknown]
